FAERS Safety Report 16721082 (Version 1)
Quarter: 2019Q3

REPORT INFORMATION
  Report Type: Spontaneous
  Country: US (occurrence: US)
  Receive Date: 20190702
  Receipt Date: 20190702
  Transmission Date: 20191005
  Serious: Yes (Death, Hospitalization, Disabling)
  Sender: FDA-Public Use
  Company Number: None

PATIENT
  Age: 69 Year
  Sex: Female
  Weight: 113.4 kg

DRUGS (1)
  1. RISPERDAL [Suspect]
     Active Substance: RISPERIDONE
     Indication: DRUG THERAPY
     Dates: end: 201905

REACTIONS (9)
  - Condition aggravated [None]
  - Constipation [None]
  - Mental disorder [None]
  - Weight increased [None]
  - Asthenia [None]
  - Panic disorder [None]
  - Anxiety [None]
  - Hyperhidrosis [None]
  - Malaise [None]

NARRATIVE: CASE EVENT DATE: 20190526
